FAERS Safety Report 5574551-0 (Version None)
Quarter: 2007Q4

REPORT INFORMATION
  Report Type: 
  Country: None (occurrence: None)
  Receive Date: 20071227
  Receipt Date: 20071214
  Transmission Date: 20080405
  Serious: Yes (Other)
  Sender: FDA-Public Use
  Company Number: GB-TEVA-165408ISR

PATIENT
  Age: 55 Year
  Sex: Male
  Weight: 85 kg

DRUGS (2)
  1. PRAVASTATIN [Suspect]
     Indication: BLOOD CHOLESTEROL INCREASED
     Route: 048
     Dates: start: 20071001, end: 20071109
  2. PRAVASTATIN [Suspect]
     Dates: start: 20071109, end: 20071207

REACTIONS (12)
  - AMNESIA [None]
  - ASTHENIA [None]
  - CONFUSIONAL STATE [None]
  - GRIP STRENGTH DECREASED [None]
  - LIBIDO DECREASED [None]
  - MUSCULAR WEAKNESS [None]
  - MYALGIA [None]
  - NOCTURIA [None]
  - SLEEP DISORDER [None]
  - SWOLLEN TONGUE [None]
  - THERAPEUTIC RESPONSE DECREASED [None]
  - TOOTH DISORDER [None]
